FAERS Safety Report 6686968-1 (Version None)
Quarter: 2010Q2

REPORT INFORMATION
  Report Type: 
  Country: None (occurrence: None)
  Receive Date: 20100419
  Receipt Date: 20100412
  Transmission Date: 20101027
  Serious: Yes (Hospitalization)
  Sender: FDA-Public Use
  Company Number: PHHO2010DE05198

PATIENT
  Sex: Female
  Weight: 73 kg

DRUGS (5)
  1. AFINITOR [Suspect]
     Indication: BREAST CANCER
     Dosage: 5 MG, QD
     Route: 048
     Dates: start: 20100204, end: 20100330
  2. PACLITAXEL [Suspect]
     Indication: BREAST CANCER
     Dosage: 150 MG
     Route: 042
     Dates: start: 20100211, end: 20100325
  3. EPIRUBICIN [Concomitant]
     Indication: BREAST CANCER
     Dosage: 168 MG, QD
     Route: 042
     Dates: start: 20091104, end: 20100107
  4. CYCLOPHOSPHAMIDE [Concomitant]
     Dosage: 1122 MG, QD
     Route: 042
     Dates: start: 20091104, end: 20100107
  5. BEVACIZUMAB [Concomitant]
     Dosage: 1035 MG, QD
     Route: 042
     Dates: start: 20091104, end: 20100107

REACTIONS (3)
  - FEBRILE NEUTROPENIA [None]
  - PYREXIA [None]
  - WHITE BLOOD CELL COUNT DECREASED [None]
